FAERS Safety Report 12915355 (Version 1)
Quarter: 2016Q4

REPORT INFORMATION
  Report Type: Spontaneous
  Country: US (occurrence: US)
  Receive Date: 20161106
  Receipt Date: 20161106
  Transmission Date: 20170207
  Serious: No
  Sender: FDA-Public Use
  Company Number: US-RELYPSA-RLY2016002751

PATIENT
  Sex: Male

DRUGS (5)
  1. METFORMIN [Concomitant]
     Active Substance: METFORMIN HYDROCHLORIDE
  2. VELTASSA [Suspect]
     Active Substance: PATIROMER
     Indication: HYPERKALAEMIA
     Dosage: 8.4 MG, QD
     Route: 048
     Dates: start: 20160830
  3. VITAMIN D [Concomitant]
     Active Substance: CHOLECALCIFEROL
  4. LISINOPRIL. [Concomitant]
     Active Substance: LISINOPRIL
  5. LIPITOR [Concomitant]
     Active Substance: ATORVASTATIN CALCIUM

REACTIONS (1)
  - Constipation [Recovering/Resolving]

NARRATIVE: CASE EVENT DATE: 2016
